FAERS Safety Report 13385062 (Version 1)
Quarter: 2017Q1

REPORT INFORMATION
  Report Type: Report from Study
  Country: US (occurrence: US)
  Receive Date: 20170329
  Receipt Date: 20170329
  Transmission Date: 20170429
  Serious: Yes (Hospitalization)
  Sender: FDA-Public Use
  Company Number: US-VIFOR (INTERNATIONAL) INC.-VIT-2017-03273

PATIENT
  Age: 89 Year
  Sex: Male

DRUGS (1)
  1. VELTASSA [Suspect]
     Active Substance: PATIROMER
     Indication: PRODUCT USED FOR UNKNOWN INDICATION
     Route: 048
     Dates: start: 201702, end: 2017

REACTIONS (5)
  - Pneumonia [Unknown]
  - Drug administration error [Unknown]
  - Cardiac disorder [Unknown]
  - Dysgeusia [Unknown]
  - Throat irritation [Unknown]

NARRATIVE: CASE EVENT DATE: 201702
